FAERS Safety Report 13408454 (Version 9)
Quarter: 2020Q2

REPORT INFORMATION
  Report Type: Spontaneous
  Country: US (occurrence: US)
  Receive Date: 20170406
  Receipt Date: 20200520
  Transmission Date: 20200713
  Serious: No
  Sender: FDA-Public Use
  Company Number: US-JNJFOC-20170211872

PATIENT
  Age: 34 Year
  Sex: Male
  Weight: 68.1 kg

DRUGS (10)
  1. INVEGA SUSTENNA [Suspect]
     Active Substance: PALIPERIDONE PALMITATE
  2. RISPERDAL CONSTA [Suspect]
     Active Substance: RISPERIDONE
  3. RISPERDAL CONSTA [Suspect]
     Active Substance: RISPERIDONE
  4. ADDERALL [Concomitant]
     Active Substance: AMPHETAMINE ASPARTATE\AMPHETAMINE SULFATE\DEXTROAMPHETAMINE SACCHARATE\DEXTROAMPHETAMINE SULFATE
     Indication: PRODUCT USED FOR UNKNOWN INDICATION
     Route: 065
  5. KLONOPIN [Concomitant]
     Active Substance: CLONAZEPAM
     Indication: PRODUCT USED FOR UNKNOWN INDICATION
     Route: 065
  6. INVEGA SUSTENNA [Suspect]
     Active Substance: PALIPERIDONE PALMITATE
  7. RISPERDAL CONSTA [Suspect]
     Active Substance: RISPERIDONE
     Indication: SCHIZOPHRENIA
     Route: 030
     Dates: start: 2016
  8. OXYCODONE [Concomitant]
     Active Substance: OXYCODONE
     Indication: PRODUCT USED FOR UNKNOWN INDICATION
     Route: 065
  9. INVEGA SUSTENNA [Suspect]
     Active Substance: PALIPERIDONE PALMITATE
     Indication: SCHIZOPHRENIA
     Route: 030
     Dates: start: 2014
  10. RISPERDAL CONSTA [Suspect]
     Active Substance: RISPERIDONE
     Indication: BIPOLAR DISORDER
     Route: 030
     Dates: start: 2016

REACTIONS (18)
  - Device leakage [Unknown]
  - Disturbance in attention [Unknown]
  - Duplicate therapy error [Unknown]
  - Product administration error [Unknown]
  - Product dose omission [Unknown]
  - Product administration error [Unknown]
  - Loss of personal independence in daily activities [Unknown]
  - Product complaint [Unknown]
  - Thinking abnormal [Unknown]
  - Needle issue [Unknown]
  - Wrong technique in product usage process [Unknown]
  - Exercise tolerance decreased [Unknown]
  - Post-traumatic stress disorder [Unknown]
  - Treatment noncompliance [Unknown]
  - Off label use [Unknown]
  - Needle issue [Unknown]
  - Injection site pain [Unknown]
  - Skin laceration [Unknown]

NARRATIVE: CASE EVENT DATE: 2014
